FAERS Safety Report 21457586 (Version 1)
Quarter: 2022Q4

REPORT INFORMATION
  Report Type: Spontaneous
  Country: ES (occurrence: None)
  Receive Date: 20221014
  Receipt Date: 20221014
  Transmission Date: 20230113
  Serious: Yes (Other)
  Sender: FDA-Public Use
  Company Number: 2022A339222

PATIENT
  Age: 90 Year
  Sex: Female

DRUGS (2)
  1. QUETIAPINE FUMARATE [Suspect]
     Active Substance: QUETIAPINE FUMARATE
     Indication: Product used for unknown indication
     Dosage: 50.0MG UNKNOWN
     Route: 048
     Dates: start: 20201208, end: 20201208
  2. RISPERIDONE [Suspect]
     Active Substance: RISPERIDONE
     Indication: Product used for unknown indication
     Dosage: 5.0MG UNKNOWN
     Route: 048
     Dates: start: 20201208, end: 20201208

REACTIONS (3)
  - Depressed level of consciousness [Unknown]
  - Hypotension [Unknown]
  - Wrong dose [Unknown]

NARRATIVE: CASE EVENT DATE: 20201209
